FAERS Safety Report 8688190 (Version 5)
Quarter: 2014Q3

REPORT INFORMATION
  Report Type: Report from Study
  Country: JP (occurrence: JP)
  Receive Date: 20120727
  Receipt Date: 20140811
  Transmission Date: 20150326
  Serious: Yes (Life-Threatening, Hospitalization, Other)
  Sender: FDA-Public Use
  Company Number: JP-SHIRE-ALL1-2011-02141

PATIENT
  Age: 69 Year
  Sex: Male

DRUGS (38)
  1. OXAROL [Concomitant]
     Active Substance: MAXACALCITOL
     Dosage: 15 ?G, 1X/WEEK
     Route: 042
     Dates: start: 20100216, end: 20100430
  2. OXAROL [Concomitant]
     Active Substance: MAXACALCITOL
     Dosage: 10 ?G, 1X/WEEK
     Route: 042
     Dates: start: 20120301, end: 20120630
  3. RENAGEL [Concomitant]
     Active Substance: SEVELAMER HYDROCHLORIDE
     Indication: HYPERPHOSPHATAEMIA
     Dosage: 1500 MG, 1X/DAY:QD
     Route: 048
     Dates: start: 20090530, end: 20090613
  4. ARTIST [Concomitant]
     Active Substance: CARVEDILOL
     Indication: PRODUCT USED FOR UNKNOWN INDICATION
     Dosage: 5 MG, UNKNOWN
     Route: 048
  5. OXAROL [Concomitant]
     Active Substance: MAXACALCITOL
     Dosage: 20 ?G, 1X/WEEK
     Route: 042
     Dates: start: 20090801, end: 20090915
  6. OXAROL [Concomitant]
     Active Substance: MAXACALCITOL
     Dosage: 10 ?G, 1X/WEEK
     Route: 042
     Dates: start: 20090916, end: 20091031
  7. OXAROL [Concomitant]
     Active Substance: MAXACALCITOL
     Dosage: 20 ?G, 1X/WEEK
     Route: 042
     Dates: start: 20101201, end: 20110131
  8. REGPARA [Concomitant]
     Active Substance: CINACALCET HYDROCHLORIDE
     Dosage: 50 MG, UNKNOWN
     Route: 048
     Dates: start: 20100918
  9. EURODIN                            /00425901/ [Concomitant]
     Active Substance: ESTAZOLAM
     Indication: PRODUCT USED FOR UNKNOWN INDICATION
     Dosage: 2 MG, UNKNOWN
     Route: 048
  10. 405 (LANTHANUM CARBONATE) [Suspect]
     Active Substance: LANTHANUM CARBONATE
     Dosage: 250 MG, 1X/DAY:QD (DAILY)
     Route: 048
     Dates: start: 20090601, end: 20090612
  11. OXAROL [Concomitant]
     Active Substance: MAXACALCITOL
     Dosage: 5 ?G, 1X/WEEK
     Route: 042
     Dates: start: 20110301, end: 20110531
  12. LAC B [Concomitant]
     Active Substance: BIFIDOBACTERIUM SPP.
     Indication: PRODUCT USED FOR UNKNOWN INDICATION
     Dosage: 3 G, UNKNOWN
     Route: 048
  13. SELBEX [Concomitant]
     Active Substance: TEPRENONE
     Indication: PRODUCT USED FOR UNKNOWN INDICATION
     Dosage: 1.5 G, UNKNOWN
     Route: 048
  14. 405 (LANTHANUM CARBONATE) [Suspect]
     Active Substance: LANTHANUM CARBONATE
     Dosage: 750 MG, DAILY, IMMEDIATELY AFTER MEALS
     Route: 048
     Dates: start: 20090530, end: 20090531
  15. 405 (LANTHANUM CARBONATE) [Suspect]
     Active Substance: LANTHANUM CARBONATE
     Dosage: 750 MG, 1X/DAY:QD (DAILY)
     Route: 048
     Dates: start: 20090613, end: 20090626
  16. 405 (LANTHANUM CARBONATE) [Suspect]
     Active Substance: LANTHANUM CARBONATE
     Dosage: 750 MG, 1X/DAY:QD (DAILY)
     Route: 048
     Dates: start: 20090703
  17. OXAROL [Concomitant]
     Active Substance: MAXACALCITOL
     Dosage: 10 ?G, 1X/WEEK
     Route: 042
     Dates: start: 20110601, end: 20111231
  18. OXAROL [Concomitant]
     Active Substance: MAXACALCITOL
     Dosage: 5 ?G, 1X/WEEK
     Route: 042
     Dates: start: 20120101, end: 20120229
  19. OXAROL [Concomitant]
     Active Substance: MAXACALCITOL
     Dosage: 10 ?G, 1X/WEEK
     Route: 042
     Dates: start: 20130601, end: 20130831
  20. CORINAEL [Concomitant]
     Active Substance: NIFEDIPINE
     Indication: PRODUCT USED FOR UNKNOWN INDICATION
     Dosage: 60 MG, UNKNOWN
     Route: 048
  21. HEPARIN [Concomitant]
     Active Substance: HEPARIN SODIUM
     Indication: HAEMORRHAGIC DIATHESIS
  22. 405 (LANTHANUM CARBONATE) [Suspect]
     Active Substance: LANTHANUM CARBONATE
     Indication: HYPERPHOSPHATAEMIA
     Dosage: 2250 MG, 1X/DAY:QD (DAILY)
     Route: 048
     Dates: start: 20100430
  23. 405 (LANTHANUM CARBONATE) [Suspect]
     Active Substance: LANTHANUM CARBONATE
     Dosage: 1500 MG, 1X/DAY:QD (DAILY)
     Route: 048
     Dates: start: 20091017, end: 20100430
  24. OXAROL [Concomitant]
     Active Substance: MAXACALCITOL
     Dosage: 10 ?G, 1X/WEEK
     Route: 042
     Dates: start: 20110201, end: 20110228
  25. RHUBARB DRY EXTRACT [Concomitant]
     Indication: PRODUCT USED FOR UNKNOWN INDICATION
     Dosage: 3 G, UNKNOWN
     Route: 048
  26. 405 (LANTHANUM CARBONATE) [Suspect]
     Active Substance: LANTHANUM CARBONATE
     Dosage: 750 MG, 1X/DAY:QD (DAILY)
     Route: 048
     Dates: start: 20090827, end: 20091016
  27. OXAROL [Concomitant]
     Active Substance: MAXACALCITOL
     Dosage: 5 ?G, 1X/WEEK
     Route: 042
     Dates: start: 20130903
  28. BAYASPIRIN [Concomitant]
     Active Substance: ASPIRIN
     Indication: HYPERPARATHYROIDISM SECONDARY
     Dosage: 100 MG, UNKNOWN
     Route: 048
  29. 405 (LANTHANUM CARBONATE) [Suspect]
     Active Substance: LANTHANUM CARBONATE
     Dosage: 1500 MG, 1X/DAY:QD (DAILY)
     Route: 048
     Dates: start: 20090627, end: 20090702
  30. 405 (LANTHANUM CARBONATE) [Suspect]
     Active Substance: LANTHANUM CARBONATE
     Dosage: 1500 MG, 1X/DAY:QD (DAILY)
     Route: 048
     Dates: start: 20090822, end: 20090826
  31. OXAROL [Concomitant]
     Active Substance: MAXACALCITOL
     Indication: PRODUCT USED FOR UNKNOWN INDICATION
     Dosage: 15 ?G, 1X/WEEK
     Route: 042
     Dates: start: 20090401, end: 20090731
  32. OXAROL [Concomitant]
     Active Substance: MAXACALCITOL
     Dosage: 30 ?G, 1X/WEEK
     Route: 042
     Dates: start: 20100501, end: 20101130
  33. REGPARA [Concomitant]
     Active Substance: CINACALCET HYDROCHLORIDE
     Indication: HYPERPARATHYROIDISM SECONDARY
     Dosage: 25 MG, UNKNOWN
     Route: 048
     Dates: end: 20100917
  34. HEPARIN [Concomitant]
     Active Substance: HEPARIN SODIUM
     Indication: HAEMORRHAGE PROPHYLAXIS
     Dosage: UNK UNK, OTHER  (1A / 3WEEKS)
     Route: 042
  35. OXAROL [Concomitant]
     Active Substance: MAXACALCITOL
     Dosage: 5 ?G, 1X/WEEK
     Route: 042
     Dates: start: 20120701, end: 20121130
  36. OMEPRAL                            /00661201/ [Concomitant]
     Active Substance: OMEPRAZOLE
     Indication: PRODUCT USED FOR UNKNOWN INDICATION
     Dosage: 10 MG, UNKNOWN
     Route: 048
     Dates: end: 20101220
  37. ZESULAN [Concomitant]
     Active Substance: MEQUITAZINE
     Indication: PRODUCT USED FOR UNKNOWN INDICATION
     Dosage: 1 DF, UNKNOWN
     Route: 048
  38. NITOROL [Concomitant]
     Active Substance: ISOSORBIDE DINITRATE
     Indication: PRODUCT USED FOR UNKNOWN INDICATION
     Dosage: 40 MG, UNKNOWN
     Route: 041

REACTIONS (11)
  - Syncope [Recovering/Resolving]
  - Lumbar spinal stenosis [Recovering/Resolving]
  - Cardiac failure congestive [Recovering/Resolving]
  - Atrial fibrillation [Recovering/Resolving]
  - Peripheral arterial occlusive disease [Unknown]
  - Retinal artery occlusion [Recovering/Resolving]
  - Angina unstable [Recovering/Resolving]
  - Condition aggravated [Recovering/Resolving]
  - Procedural hypotension [Recovering/Resolving]
  - Cardiac failure [Recovering/Resolving]
  - Dizziness [Recovering/Resolving]

NARRATIVE: CASE EVENT DATE: 20100720
